FAERS Safety Report 5929616-8 (Version None)
Quarter: 2008Q4

REPORT INFORMATION
  Report Type: 
  Country: None (occurrence: None)
  Receive Date: 20081024
  Receipt Date: 20081014
  Transmission Date: 20090506
  Serious: Yes (Hospitalization, Other)
  Sender: FDA-Public Use
  Company Number: NL-JNJFOC-20081003520

PATIENT
  Sex: Female
  Weight: 3.34 kg

DRUGS (6)
  1. REMICADE [Suspect]
     Indication: DRUG EXPOSURE DURING PREGNANCY
     Route: 015
  2. ADALIMUMAB [Concomitant]
     Route: 015
  3. PREDNISONE TAB [Concomitant]
     Route: 015
  4. PREDNISONE TAB [Concomitant]
     Route: 015
  5. IMURAN [Concomitant]
     Route: 015
  6. FOLIC ACID [Concomitant]
     Route: 015

REACTIONS (2)
  - HAEMOGLOBIN INCREASED [None]
  - PREMATURE BABY [None]
